FAERS Safety Report 7482070-X (Version None)
Quarter: 2011Q2

REPORT INFORMATION
  Report Type: 
  Country: None (occurrence: None)
  Receive Date: 20110516
  Receipt Date: 20110506
  Transmission Date: 20111010
  Serious: Yes (Other)
  Sender: FDA-Public Use
  Company Number: PHHY2011US38233

PATIENT
  Age: 7 Year
  Sex: Female

DRUGS (4)
  1. AZATHIOPRINE [Concomitant]
     Dosage: 25 MG, QD
  2. MELPHALAN HYDROCHLORIDE [Suspect]
     Dosage: 40 MG, QD
  3. MELPHALAN HYDROCHLORIDE [Suspect]
     Dosage: 60 MG, QD
  4. AZATHIOPRINE [Concomitant]
     Dosage: 75 MG, QD

REACTIONS (5)
  - TRANSAMINASES INCREASED [None]
  - GROWTH RETARDATION [None]
  - CUSHINGOID [None]
  - BONE DENSITY DECREASED [None]
  - STEROID WITHDRAWAL SYNDROME [None]
